FAERS Safety Report 11627111 (Version 1)
Quarter: 2015Q4

REPORT INFORMATION
  Report Type: Spontaneous
  Country: US (occurrence: US)
  Receive Date: 20151013
  Receipt Date: 20151013
  Transmission Date: 20160304
  Serious: Yes (Hospitalization, Other)
  Sender: FDA-Public Use
  Company Number: US-RB PHARMACEUTICALS LIMITED-RB-080477-2015

PATIENT
  Age: 0 Year
  Sex: Male
  Weight: 3.03 kg

DRUGS (2)
  1. SUBOXONE [Suspect]
     Active Substance: BUPRENORPHINE HYDROCHLORIDE\NALOXONE HYDROCHLORIDE
     Indication: DRUG DEPENDENCE
     Dosage: 1 MG, QD (4-6 WEEKS)
     Route: 064
     Dates: start: 201404, end: 201405
  2. BUPRENORPHINE GENERIC TAB [Suspect]
     Active Substance: BUPRENORPHINE
     Indication: DRUG DEPENDENCE
     Dosage: 1 MG, QD (ABOUT 8 MONTHS)
     Route: 064
     Dates: start: 201405, end: 20150110

REACTIONS (2)
  - Drug withdrawal syndrome neonatal [Recovered/Resolved]
  - Foetal exposure during pregnancy [Recovered/Resolved]

NARRATIVE: CASE EVENT DATE: 201404
